FAERS Safety Report 20135439 (Version 1)
Quarter: 2021Q4

REPORT INFORMATION
  Report Type: Spontaneous
  Country: FR (occurrence: FR)
  Receive Date: 20211201
  Receipt Date: 20211201
  Transmission Date: 20220303
  Serious: Yes (Other)
  Sender: FDA-Public Use
  Company Number: FR-NOVARTISPH-NVSC2021FR273915

PATIENT
  Age: 83 Year
  Sex: Male

DRUGS (1)
  1. AZOPT [Suspect]
     Active Substance: BRINZOLAMIDE
     Indication: Glaucoma
     Dosage: 1 EYE DROP IN EACH EYE (IN THE MORNING AND IN THE EVENING)
     Route: 065
     Dates: start: 202111

REACTIONS (1)
  - Renal failure [Unknown]
